FAERS Safety Report 7987855 (Version 6)
Quarter: 2013Q1

REPORT INFORMATION
  Report Type: Spontaneous
  Country: GB (occurrence: GB)
  Receive Date: 20110613
  Receipt Date: 20130326
  Transmission Date: 20140127
  Serious: Yes (Death, Hospitalization, Other)
  Sender: FDA-Public Use
  Company Number: PHFR2011GB03542

PATIENT
  Age: 80 Year
  Sex: Male
  Weight: 50 kg

DRUGS (2)
  1. CLOZARIL [Suspect]
     Indication: PARKINSON^S DISEASE
     Dosage: UNK
     Route: 048
     Dates: start: 20060221
  2. WARFARIN [Concomitant]

REACTIONS (19)
  - General physical health deterioration [Fatal]
  - Asthenia [Fatal]
  - Parkinson^s disease [Fatal]
  - Bronchopneumonia [Fatal]
  - Lower respiratory tract infection [Fatal]
  - Mobility decreased [Fatal]
  - Osteoporotic fracture [Fatal]
  - Wound infection [Fatal]
  - Chronic obstructive pulmonary disease [Fatal]
  - Gastrointestinal hypomotility [Fatal]
  - Fall [Unknown]
  - Urinary tract infection [Unknown]
  - Lung disorder [Unknown]
  - Gastroenteritis norovirus [Recovered/Resolved]
  - Wound haematoma [Unknown]
  - Emphysema [Unknown]
  - Confusional state [Unknown]
  - Abdominal distension [Unknown]
  - Constipation [Unknown]
